FAERS Safety Report 8720032 (Version 2)
Quarter: 2012Q4

REPORT INFORMATION
  Report Type: Report from Study
  Country: FR (occurrence: FR)
  Receive Date: 20120813
  Receipt Date: 20120924
  Transmission Date: 20130627
  Serious: Yes (Hospitalization)
  Sender: FDA-Public Use
  Company Number: FR-MPIJNJ-2012-05424

PATIENT

DRUGS (13)
  1. VELCADE [Suspect]
     Indication: MULTIPLE MYELOMA
     Dosage: 1.3 mg/m2, UNK
     Route: 042
     Dates: start: 20120326
  2. DEXAMETHASONE [Suspect]
     Indication: MULTIPLE MYELOMA
     Dosage: 20 mg, UNK
     Route: 065
     Dates: start: 20120318, end: 20120321
  3. DEXAMETHASONE [Suspect]
     Indication: RENAL IMPAIRMENT
  4. BISOPROLOL [Concomitant]
     Dosage: 10 mg, UNK
  5. AMLOR [Concomitant]
     Dosage: 10 mg, UNK
  6. SIMVASTATIN [Concomitant]
     Dosage: 20 mg, UNK
  7. MOPRAL                             /00661201/ [Concomitant]
     Dosage: 20 mg, UNK
  8. LEVOTHYROX [Concomitant]
     Dosage: 75 ?g, UNK
  9. SODIUM BICARBONATE [Concomitant]
     Dosage: 500 mg, UNK
  10. ZELITREX                           /01269701/ [Concomitant]
     Dosage: 500 mg, UNK
  11. TARDYFERON                         /00023503/ [Concomitant]
     Dosage: 2 DF, UNK
  12. RULID [Concomitant]
     Dosage: 2 DF, UNK
  13. WELLVONE [Concomitant]

REACTIONS (6)
  - Vertigo [Recovered/Resolved]
  - Orthostatic hypotension [Recovered/Resolved]
  - Fall [Recovered/Resolved]
  - Amyloidosis [None]
  - Pericardial effusion [None]
  - Tricuspid valve incompetence [None]
